FAERS Safety Report 17577853 (Version 1)
Quarter: 2020Q1

REPORT INFORMATION
  Report Type: Spontaneous
  Country: DE (occurrence: DE)
  Receive Date: 20200324
  Receipt Date: 20200324
  Transmission Date: 20200409
  Serious: Yes (Other)
  Sender: FDA-Public Use
  Company Number: DE-GUERBET-DE-20200037

PATIENT
  Age: 28 Year
  Sex: Female
  Weight: 100 kg

DRUGS (1)
  1. DOTAREM [Suspect]
     Active Substance: GADOTERATE MEGLUMINE
     Indication: MAGNETIC RESONANCE IMAGING BRAIN
     Route: 042
     Dates: start: 20200302, end: 20200302

REACTIONS (5)
  - Vomiting [Unknown]
  - Headache [Unknown]
  - Nausea [Unknown]
  - Cold sweat [Unknown]
  - Hypertension [Unknown]

NARRATIVE: CASE EVENT DATE: 20200302
